FAERS Safety Report 12681115 (Version 1)
Quarter: 2016Q3

REPORT INFORMATION
  Report Type: Report from Study
  Country: AU (occurrence: AU)
  Receive Date: 20160824
  Receipt Date: 20160824
  Transmission Date: 20161109
  Serious: Yes (Death)
  Sender: FDA-Public Use
  Company Number: AU-GE HEALTHCARE MEDICAL DIAGNOSTICS-CRTC-PR-1608C-0006

PATIENT

DRUGS (3)
  1. CERETEC [Concomitant]
     Active Substance: TECHNETIUM TC-99M EXAMETAZIME
  2. CERETEC [Suspect]
     Active Substance: TECHNETIUM TC-99M EXAMETAZIME
     Indication: SUBARACHNOID HAEMORRHAGE
     Dosage: DOSE NOT REPORTED
     Route: 065
  3. CERETEC [Suspect]
     Active Substance: TECHNETIUM TC-99M EXAMETAZIME
     Indication: DIAGNOSTIC PROCEDURE

REACTIONS (3)
  - Cerebral infarction [Fatal]
  - Vasospasm [Fatal]
  - Oedema [Fatal]
